FAERS Safety Report 25610057 (Version 1)
Quarter: 2025Q3

REPORT INFORMATION
  Report Type: Spontaneous
  Country: IN (occurrence: None)
  Receive Date: 20250728
  Receipt Date: 20250728
  Transmission Date: 20251020
  Serious: Yes (Other)
  Sender: Alvotech
  Company Number: IN-ALVOTECHPMS-2025-ALVOTECHPMS-004677

PATIENT
  Age: 65 Year
  Sex: Male

DRUGS (5)
  1. ADALIMUMAB [Suspect]
     Active Substance: ADALIMUMAB
     Indication: Cardiac sarcoidosis
     Dosage: 40 MG, EVERY 2 WEEKS
     Route: 058
  2. PREDNISONE [Concomitant]
     Active Substance: PREDNISONE
     Indication: Cardiac sarcoidosis
     Dosage: 10 MG DAILY
  3. APIXABAN [Concomitant]
     Active Substance: APIXABAN
     Indication: Atrial fibrillation
  4. PREDNISONE [Concomitant]
     Active Substance: PREDNISONE
     Indication: Cardiomyopathy
  5. ADALIMUMAB [Suspect]
     Active Substance: ADALIMUMAB
     Indication: Cardiomyopathy
     Dosage: 40 MG, EVERY 2 WEEKS
     Route: 058

REACTIONS (2)
  - Kaposi^s sarcoma [Unknown]
  - Off label use [Unknown]
